FAERS Safety Report 10237346 (Version 2)
Quarter: 2014Q2

REPORT INFORMATION
  Report Type: Spontaneous
  Country: US (occurrence: US)
  Receive Date: 20140613
  Receipt Date: 20140623
  Transmission Date: 20141212
  Serious: Yes (Other)
  Sender: FDA-Public Use
  Company Number: US-ALLERGAN-1412837US

PATIENT
  Age: 75 Year
  Sex: Female

DRUGS (5)
  1. COMBIGAN[R] [Suspect]
     Indication: GLAUCOMA
     Dosage: 1 GTT, BID
     Route: 047
  2. COMBIGAN[R] [Suspect]
     Dosage: 1 UNK, UNK
     Route: 047
  3. COMBIGAN[R] [Suspect]
     Dosage: 1 UNK, UNK
     Route: 047
  4. DUREZOL [Concomitant]
     Dosage: UNK
  5. MURO 128 [Concomitant]

REACTIONS (6)
  - Blindness [Unknown]
  - Eye swelling [Unknown]
  - Intraocular pressure increased [Unknown]
  - Inappropriate schedule of drug administration [Unknown]
  - Vitreous floaters [Unknown]
  - Vision blurred [Unknown]
